FAERS Safety Report 6564713-8 (Version None)
Quarter: 2010Q1

REPORT INFORMATION
  Report Type: 
  Country: None (occurrence: None)
  Receive Date: 20100201
  Receipt Date: 20091204
  Transmission Date: 20100710
  Serious: No
  Sender: FDA-Public Use
  Company Number: A0833625A

PATIENT
  Age: 39 Year
  Sex: Female

DRUGS (2)
  1. TREXIMET [Suspect]
     Indication: MIGRAINE
     Dosage: 1TAB AS REQUIRED
     Route: 048
     Dates: start: 20091204
  2. NUVARING [Concomitant]

REACTIONS (2)
  - ACCIDENTAL OVERDOSE [None]
  - ANXIETY [None]
